FAERS Safety Report 4398658-9 (Version None)
Quarter: 2004Q3

REPORT INFORMATION
  Report Type: 
  Country: None (occurrence: None)
  Receive Date: 20040715
  Receipt Date: 20040707
  Transmission Date: 20050211
  Serious: Yes (Other)
  Sender: FDA-Public Use
  Company Number: PHBS2004BR09138

PATIENT
  Age: 26 Year
  Sex: Female
  Weight: 59 kg

DRUGS (1)
  1. ZELMAC [Suspect]
     Indication: GASTROINTESTINAL DISORDER
     Dosage: 12 MG/DAY
     Route: 048
     Dates: start: 20040626, end: 20040629

REACTIONS (9)
  - ASTHENIA [None]
  - BLOOD PRESSURE DECREASED [None]
  - DEHYDRATION [None]
  - EYE SWELLING [None]
  - FEELING ABNORMAL [None]
  - HEADACHE [None]
  - SKIN DISCOLOURATION [None]
  - SWELLING FACE [None]
  - TREMOR [None]
